FAERS Safety Report 6396548-3 (Version None)
Quarter: 2009Q4

REPORT INFORMATION
  Report Type: 
  Country: None (occurrence: None)
  Receive Date: 20091012
  Receipt Date: 20090928
  Transmission Date: 20100525
  Serious: Yes (Hospitalization)
  Sender: FDA-Public Use
  Company Number: JP-PFIZER INC-2009277168

PATIENT
  Age: 44 Year

DRUGS (8)
  1. BANAN [Suspect]
     Indication: PYREXIA
     Dosage: UNK
     Route: 048
     Dates: start: 20090916
  2. BANAN [Suspect]
     Indication: PYELONEPHRITIS
  3. LOXOPROFEN SODIUM [Suspect]
     Indication: PYREXIA
     Dosage: 60 MG, 2X/DAY
     Route: 048
     Dates: start: 20090916, end: 20090916
  4. ISEPACIN [Suspect]
     Indication: PYELONEPHRITIS
     Dosage: 400 MG, 1X/DAY
     Route: 042
     Dates: start: 20090916, end: 20090916
  5. ISEPACIN [Suspect]
     Dosage: 400 MG, 1X/DAY
     Route: 042
     Dates: start: 20090918, end: 20090918
  6. SELBEX [Concomitant]
     Indication: GASTRITIS
     Dosage: 50 MG, 2X/DAY
     Route: 048
     Dates: start: 20090916, end: 20090916
  7. SELBEX [Concomitant]
     Dosage: 50 MG, 2X/DAY
     Route: 048
     Dates: start: 20090918
  8. PARIET [Concomitant]
     Indication: GASTRITIS

REACTIONS (1)
  - RENAL FAILURE ACUTE [None]
